FAERS Safety Report 6166128-3 (Version None)
Quarter: 2009Q2

REPORT INFORMATION
  Report Type: 
  Country: None (occurrence: None)
  Receive Date: 20090422
  Receipt Date: 20090422
  Transmission Date: 20091009
  Serious: No
  Sender: FDA-Public Use
  Company Number: None

PATIENT

DRUGS (1)
  1. AZITHROMYCIN [Suspect]
     Indication: UPPER RESPIRATORY TRACT INFECTION
     Dosage: 250 MG EVERY DAY PO
     Route: 048
     Dates: start: 20090417, end: 20090419

REACTIONS (3)
  - AGGRESSION [None]
  - AGITATION [None]
  - CONFUSIONAL STATE [None]
